FAERS Safety Report 23379237 (Version 1)
Quarter: 2024Q1

REPORT INFORMATION
  Report Type: Spontaneous
  Country: US (occurrence: None)
  Receive Date: 20240107
  Receipt Date: 20240107
  Transmission Date: 20240409
  Serious: No
  Sender: FDA-Public Use
  Company Number: None

PATIENT
  Age: 67 Year
  Sex: Female
  Weight: 109.8 kg

DRUGS (14)
  1. OZEMPIC [Suspect]
     Active Substance: SEMAGLUTIDE
     Indication: Type 2 diabetes mellitus
     Dosage: OTHER QUANTITY : 1 INJECTION(S);?FREQUENCY : WEEKLY;?
     Route: 058
     Dates: start: 20230707, end: 20231124
  2. amphetamine/dextroamph [Concomitant]
  3. ARIPIPRAZOLE [Concomitant]
     Active Substance: ARIPIPRAZOLE
  4. ATORVASTATIN CALCIUM [Concomitant]
     Active Substance: ATORVASTATIN CALCIUM
  5. BENAZEPRIL [Concomitant]
     Active Substance: BENAZEPRIL HYDROCHLORIDE
  6. BUPROPION [Concomitant]
     Active Substance: BUPROPION
  7. levothyroxine pantoprazole [Concomitant]
  8. QUETIAPINE FUMARATE [Concomitant]
     Active Substance: QUETIAPINE FUMARATE
  9. MAGNESIUM [Concomitant]
     Active Substance: MAGNESIUM
  10. VITAMIN B12 [Concomitant]
     Active Substance: CYANOCOBALAMIN
  11. VITAMIN D3 [Concomitant]
     Active Substance: CHOLECALCIFEROL
  12. VITAMIN E [Concomitant]
     Active Substance: .ALPHA.-TOCOPHEROL
  13. VITAMINS [Concomitant]
     Active Substance: VITAMINS
  14. CALCIUM [Concomitant]
     Active Substance: CALCIUM

REACTIONS (1)
  - Alopecia [None]

NARRATIVE: CASE EVENT DATE: 20231110
